FAERS Safety Report 9504865 (Version 2)
Quarter: 2013Q3

REPORT INFORMATION
  Report Type: Spontaneous
  Country: UA (occurrence: UA)
  Receive Date: 20130906
  Receipt Date: 20130910
  Transmission Date: 20140515
  Serious: Yes (Death, Life-Threatening)
  Sender: FDA-Public Use
  Company Number: UA-B.I. PHARMACEUTICALS,INC./RIDGEFIELD-2013-BI-27649UA

PATIENT
  Age: 70 Year
  Sex: Female

DRUGS (6)
  1. PRADAXA [Suspect]
     Indication: CEREBROVASCULAR ACCIDENT PROPHYLAXIS
     Dosage: 300 MG
     Route: 048
     Dates: start: 20130709, end: 20130725
  2. PRADAXA [Suspect]
     Indication: ATRIAL FIBRILLATION
  3. ARIXTRA [Concomitant]
  4. STATINS [Concomitant]
  5. CORDARONE [Concomitant]
  6. NOLIPREL [Concomitant]

REACTIONS (2)
  - Death [Fatal]
  - Gastrointestinal haemorrhage [Unknown]
